FAERS Safety Report 4714115-1 (Version None)
Quarter: 2005Q3

REPORT INFORMATION
  Report Type: 
  Country: None (occurrence: None)
  Receive Date: 20050714
  Receipt Date: 20050705
  Transmission Date: 20060218
  Serious: Yes (Other)
  Sender: FDA-Public Use
  Company Number: PHBS2005CA09745

PATIENT
  Sex: Female

DRUGS (2)
  1. ESTRADERM [Suspect]
     Indication: MENOPAUSAL SYMPTOMS
     Dosage: 50 UG/DAY
     Route: 062
     Dates: start: 19920101, end: 20040101
  2. ESTRADERM [Suspect]
     Dosage: 50 UG/DAY
     Route: 062
     Dates: start: 20040805

REACTIONS (1)
  - CAROTID ARTERY OCCLUSION [None]
